FAERS Safety Report 7263874-5 (Version None)
Quarter: 2011Q1

REPORT INFORMATION
  Report Type: 
  Country: None (occurrence: None)
  Receive Date: 20110130
  Receipt Date: 20101207
  Transmission Date: 20110831
  Serious: No
  Sender: FDA-Public Use
  Company Number: US-ABBOTT-10P-163-0690069-00

PATIENT
  Age: 46 Year
  Sex: Female

DRUGS (1)
  1. HUMIRA [Suspect]
     Indication: PSORIASIS
     Dates: start: 20101001, end: 20101201

REACTIONS (4)
  - PSORIASIS [None]
  - LOCALISED INFECTION [None]
  - OEDEMA PERIPHERAL [None]
  - ARTHRALGIA [None]
